FAERS Safety Report 6772615-7 (Version None)
Quarter: 2010Q2

REPORT INFORMATION
  Report Type: 
  Country: None (occurrence: None)
  Receive Date: 20100616
  Receipt Date: 20090924
  Transmission Date: 20101027
  Serious: Yes (Hospitalization)
  Sender: FDA-Public Use
  Company Number: US-ASTRAZENECA-2009SE15312

PATIENT
  Sex: Female
  Weight: 58.5 kg

DRUGS (3)
  1. PULMICORT RESPULES [Suspect]
     Indication: EMPHYSEMA
     Route: 055
     Dates: start: 20040101, end: 20090101
  2. ALBUTEROL [Concomitant]
  3. SEVERAL CONCOMITANT MEDICATION (NOT SPECIFIELD) [Concomitant]

REACTIONS (1)
  - PNEUMONIA [None]
